FAERS Safety Report 6422465-6 (Version None)
Quarter: 2009Q4

REPORT INFORMATION
  Report Type: 
  Country: None (occurrence: None)
  Receive Date: 20091030
  Receipt Date: 20091020
  Transmission Date: 20100525
  Serious: Yes (Hospitalization)
  Sender: FDA-Public Use
  Company Number: SE-AMGEN-US325072

PATIENT
  Sex: Female

DRUGS (4)
  1. ENBREL [Suspect]
     Indication: RHEUMATOID ARTHRITIS
     Dosage: DOSE 50 MG WEEKLY
     Dates: start: 19990701, end: 20081107
  2. IBRUPROFEN [Concomitant]
  3. RELIFEX [Concomitant]
  4. METHOTREXATE [Concomitant]

REACTIONS (4)
  - CRYOGLOBULINAEMIA [None]
  - DRUG INEFFECTIVE [None]
  - RESPIRATORY FAILURE [None]
  - VASCULITIS [None]
